FAERS Safety Report 8849546 (Version 1)
Quarter: 2012Q4

REPORT INFORMATION
  Report Type: Spontaneous
  Country: US (occurrence: None)
  Receive Date: 20121018
  Receipt Date: 20121018
  Transmission Date: 20130627
  Serious: Yes (Other)
  Sender: FDA-Public Use
  Company Number: None

PATIENT
  Age: 57 Year
  Sex: Female
  Weight: 72.58 kg

DRUGS (2)
  1. MOVIPREP [Suspect]
     Indication: BOWEL PREPARATION
     Dosage: 2 liters every 20 minutes
     Route: 048
     Dates: start: 20121015, end: 20121015
  2. MOVIPREP [Suspect]
     Indication: COLONOSCOPY
     Dosage: 2 liters every 20 minutes
     Route: 048
     Dates: start: 20121015, end: 20121015

REACTIONS (7)
  - Diarrhoea [None]
  - Muscle spasms [None]
  - Proctalgia [None]
  - Anal haemorrhage [None]
  - Dehydration [None]
  - Migraine [None]
  - Anorectal discomfort [None]
